FAERS Safety Report 12247709 (Version 2)
Quarter: 2016Q3

REPORT INFORMATION
  Report Type: Spontaneous
  Country: US (occurrence: US)
  Receive Date: 20160408
  Receipt Date: 20160714
  Transmission Date: 20161109
  Serious: Yes (Death)
  Sender: FDA-Public Use
  Company Number: US-ASTRAZENECA-2016SE36420

PATIENT
  Age: 294 Day
  Sex: Female

DRUGS (6)
  1. CHLOROTHIAZIDE. [Concomitant]
     Active Substance: CHLOROTHIAZIDE
  2. SYNAGIS [Suspect]
     Active Substance: PALIVIZUMAB
     Indication: RESPIRATORY SYNCYTIAL VIRUS INFECTION
     Dosage: 100 MG/1 ML, 15 MG/KG MONTHLY
     Route: 030
     Dates: start: 20160316, end: 20160401
  3. LASIX [Concomitant]
     Active Substance: FUROSEMIDE
  4. SYNAGIS [Suspect]
     Active Substance: PALIVIZUMAB
     Indication: PREMATURE BABY
     Dosage: 100 MG/1 ML, 15 MG/KG MONTHLY
     Route: 030
     Dates: start: 20160316, end: 20160401
  5. VITAMIN D [Concomitant]
     Active Substance: CHOLECALCIFEROL
  6. QVAR [Concomitant]
     Active Substance: BECLOMETHASONE DIPROPIONATE

REACTIONS (1)
  - Renal failure [Fatal]

NARRATIVE: CASE EVENT DATE: 20160401
